FAERS Safety Report 7003331-4 (Version None)
Quarter: 2010Q3

REPORT INFORMATION
  Report Type: 
  Country: None (occurrence: None)
  Receive Date: 20100920
  Receipt Date: 20100824
  Transmission Date: 20110219
  Serious: Yes (Hospitalization)
  Sender: FDA-Public Use
  Company Number: A0877669A

PATIENT
  Age: 35 Year
  Sex: Male

DRUGS (2)
  1. LAMOTRIGINE [Suspect]
     Dosage: 200MG PER DAY
     Route: 048
  2. ZOLOFT [Concomitant]

REACTIONS (2)
  - OROPHARYNGEAL BLISTERING [None]
  - PYREXIA [None]
